FAERS Safety Report 4281948-8 (Version None)
Quarter: 2004Q1

REPORT INFORMATION
  Report Type: 
  Country: None (occurrence: None)
  Receive Date: 20040128
  Receipt Date: 20040114
  Transmission Date: 20041129
  Serious: Yes (Life-Threatening, Hospitalization)
  Sender: FDA-Public Use
  Company Number: SGB1-2003-00673

PATIENT
  Age: 54 Year
  Sex: Male

DRUGS (4)
  1. MIDON 2.5MG () TABLET [Suspect]
     Indication: HYPOTENSION
     Dosage: 7.5 MG, ORAL
     Route: 048
  2. TEGRETOL [Suspect]
     Indication: CONVULSION
     Dosage: 600 MG, ORAL
     Route: 048
  3. METOCLOPRAMIDE HYDROCHLORIDE [Suspect]
     Indication: PROPHYLAXIS OF NAUSEA AND VOMITING
     Dosage: 60 MG, ORAL
     Route: 048
  4. DORYL (CARBACHOL) [Concomitant]

REACTIONS (3)
  - CARDIAC ARREST [None]
  - CARDIOMEGALY [None]
  - DRUG INTERACTION [None]
